FAERS Safety Report 7473400-3 (Version None)
Quarter: 2011Q2

REPORT INFORMATION
  Report Type: 
  Country: None (occurrence: None)
  Receive Date: 20110511
  Receipt Date: 20100924
  Transmission Date: 20111010
  Serious: Yes (Hospitalization, Other)
  Sender: FDA-Public Use
  Company Number: PHHO2010FR14575

PATIENT
  Sex: Male

DRUGS (7)
  1. IMOVANE [Concomitant]
  2. NEXIUM [Concomitant]
  3. METHOTREXATE [Concomitant]
     Indication: ACUTE LYMPHOCYTIC LEUKAEMIA
     Dosage: 2000MG
     Route: 042
     Dates: start: 20091119
  4. ARACYTINE [Concomitant]
     Indication: ACUTE LYMPHOCYTIC LEUKAEMIA
     Dosage: 6000MG X2/DAY
     Route: 042
     Dates: start: 20091120
  5. DEXAMETHASONE [Concomitant]
  6. VINCRISTINE [Concomitant]
  7. IMATINIB MESYLATE [Suspect]
     Indication: ACUTE LYMPHOCYTIC LEUKAEMIA
     Dosage: 400 MG, BID
     Route: 048
     Dates: start: 20091119

REACTIONS (4)
  - BONE MARROW FAILURE [None]
  - STAPHYLOCOCCAL BACTERAEMIA [None]
  - DECREASED APPETITE [None]
  - HYPERTHERMIA [None]
